FAERS Safety Report 6408938-0 (Version None)
Quarter: 2009Q4

REPORT INFORMATION
  Report Type: 
  Country: None (occurrence: None)
  Receive Date: 20091021
  Receipt Date: 20090402
  Transmission Date: 20100525
  Serious: Yes (Other)
  Sender: FDA-Public Use
  Company Number: US-ASTRAZENECA-2009UW08437

PATIENT
  Age: 15 Year
  Sex: Male

DRUGS (1)
  1. MERREM [Suspect]
     Route: 042
     Dates: start: 20090401, end: 20090401

REACTIONS (1)
  - CONVULSION [None]
